FAERS Safety Report 6403031-5 (Version None)
Quarter: 2009Q4

REPORT INFORMATION
  Report Type: 
  Country: None (occurrence: None)
  Receive Date: 20091016
  Receipt Date: 20091008
  Transmission Date: 20100525
  Serious: Yes (Hospitalization)
  Sender: FDA-Public Use
  Company Number: NL-ELI_LILLY_AND_COMPANY-NL200909003437

PATIENT
  Sex: Female
  Weight: 111.3 kg

DRUGS (9)
  1. SOMATROPIN [Suspect]
     Indication: GROWTH HORMONE DEFICIENCY
     Dosage: 0.3 MG, UNK
     Route: 058
     Dates: start: 19920101
  2. THYROXIN [Concomitant]
     Indication: SECONDARY HYPOTHYROIDISM
     Dates: start: 19920101
  3. HYDROCORTISONE [Concomitant]
     Indication: SECONDARY ADRENOCORTICAL INSUFFICIENCY
     Dates: start: 19920101
  4. HYDROCORTISONE [Concomitant]
     Route: 042
     Dates: start: 20090601
  5. FOLIC ACID [Concomitant]
     Indication: RHEUMATOID ARTHRITIS
     Dates: start: 20090301
  6. PLAQUENIL /00072601/ [Concomitant]
     Indication: RHEUMATOID ARTHRITIS
     Dates: start: 20070901
  7. NAPROSYN [Concomitant]
     Indication: RHEUMATOID ARTHRITIS
     Dates: start: 20070901
  8. METHOTREXATE [Concomitant]
     Indication: RHEUMATOID ARTHRITIS
     Dates: start: 20090301
  9. SERETIDE [Concomitant]
     Indication: CHRONIC OBSTRUCTIVE PULMONARY DISEASE
     Dates: start: 20050101

REACTIONS (1)
  - ADRENOCORTICAL INSUFFICIENCY ACUTE [None]
